FAERS Safety Report 8611515-4 (Version None)
Quarter: 2012Q3

REPORT INFORMATION
  Report Type: 
  Country: None (occurrence: None)
  Receive Date: 20120822
  Receipt Date: 20120816
  Transmission Date: 20120928
  Serious: Yes (Other)
  Sender: FDA-Public Use
  Company Number: US-PFIZER INC-2012049892

PATIENT
  Age: 57 Year
  Sex: Male

DRUGS (3)
  1. VICODIN [Concomitant]
     Indication: PAIN
     Dosage: 5/500 QBH PRN
  2. LYRICA [Suspect]
     Indication: LUMBAR RADICULOPATHY
     Dosage: 75 MG, 2X/DAY
     Route: 048
     Dates: start: 20100101, end: 20120201
  3. NAPROSYN [Concomitant]
     Indication: PAIN
     Dosage: 500 MG, 2X/DAY PRN
     Route: 048

REACTIONS (5)
  - HOMICIDAL IDEATION [None]
  - BLOOD ALCOHOL INCREASED [None]
  - FEELING ABNORMAL [None]
  - IMPAIRED DRIVING ABILITY [None]
  - CARDIAC DISORDER [None]
